FAERS Safety Report 7523998-1 (Version None)
Quarter: 2011Q2

REPORT INFORMATION
  Report Type: 
  Country: None (occurrence: None)
  Receive Date: 20110604
  Receipt Date: 20110526
  Transmission Date: 20111010
  Serious: Yes (Other)
  Sender: FDA-Public Use
  Company Number: US-AMGEN-USASP2011023928

PATIENT
  Age: 51 Year
  Sex: Female

DRUGS (2)
  1. REQUIP [Concomitant]
  2. ENBREL [Suspect]
     Indication: PSORIASIS
     Dosage: 50 MG, 2 TIMES/WK
     Dates: start: 20110505

REACTIONS (5)
  - ABDOMINAL PAIN UPPER [None]
  - RESTLESSNESS [None]
  - PALPITATIONS [None]
  - INSOMNIA [None]
  - FEELING JITTERY [None]
